FAERS Safety Report 5081554-1 (Version None)
Quarter: 2006Q3

REPORT INFORMATION
  Report Type: 
  Country: None (occurrence: None)
  Receive Date: 20060811
  Receipt Date: 20060801
  Transmission Date: 20061208
  Serious: Yes (Hospitalization)
  Sender: FDA-Public Use
  Company Number: 2005US000697

PATIENT
  Age: 51 Year
  Sex: Male

DRUGS (10)
  1. PROGRAF [Suspect]
     Indication: PROPHYLAXIS AGAINST TRANSPLANT REJECTION
     Dosage: 1 MG BID ORAL
     Route: 048
     Dates: start: 20050427
  2. CELLCEPT [Suspect]
     Indication: PROPHYLAXIS AGAINST TRANSPLANT REJECTION
     Dosage: 1000 MG BID ORAL
     Route: 048
     Dates: start: 20050422
  3. SOLU-MEDROL [Suspect]
     Indication: PROPHYLAXIS AGAINST TRANSPLANT REJECTION
     Dosage: 30 MG UID/QD, IV NOS
     Route: 042
     Dates: start: 20050503
  4. ALBUTEROL (WITH MUCOMYST NEBULIZER) [Concomitant]
  5. CALCITROL (ERGOCALCIFEROL, RETINOL) [Concomitant]
  6. SULPHAMETHIZOLE [Concomitant]
  7. LASIX (FUROSEMIDE, FUROSEMIDE SODIUM) [Concomitant]
  8. PANTOPRAZOLE SODIUM [Concomitant]
  9. VALGANCICLOVIR HCL [Concomitant]
  10. FLUDROCORTISONE [Concomitant]

REACTIONS (1)
  - PNEUMONITIS CRYPTOCOCCAL [None]
